FAERS Safety Report 9837443 (Version 1)
Quarter: 2013Q4

REPORT INFORMATION
  Report Type: Spontaneous
  Country: US (occurrence: None)
  Receive Date: 20131127
  Receipt Date: 20131127
  Transmission Date: 20140711
  Serious: No
  Sender: FDA-Public Use
  Company Number: 224199

PATIENT
  Sex: Male

DRUGS (1)
  1. PICATO (INGENOL MEBUTATE) (0.015 %) [Suspect]
     Indication: PRECANCEROUS CELLS PRESENT
     Dosage: (DAILY X 3 DAYS), TOPICAL
     Route: 061

REACTIONS (1)
  - Drug dispensing error [None]
